FAERS Safety Report 6127998-8 (Version None)
Quarter: 2009Q1

REPORT INFORMATION
  Report Type: 
  Country: None (occurrence: None)
  Receive Date: 20090320
  Receipt Date: 20090320
  Transmission Date: 20090719
  Serious: Yes (Other)
  Sender: FDA-Public Use
  Company Number: None

PATIENT
  Age: 68 Year
  Sex: Male

DRUGS (1)
  1. PIROXICAM [Suspect]
     Indication: RENAL FAILURE CHRONIC
     Dosage: 20 MG EVERY DAY PO
     Route: 048
     Dates: start: 20000628, end: 20030922

REACTIONS (2)
  - DRUG ABUSE [None]
  - RENAL FAILURE CHRONIC [None]
